FAERS Safety Report 7510731-2 (Version None)
Quarter: 2011Q2

REPORT INFORMATION
  Report Type: 
  Country: None (occurrence: None)
  Receive Date: 20110530
  Receipt Date: 20110516
  Transmission Date: 20111010
  Serious: Yes (Hospitalization, Other)
  Sender: FDA-Public Use
  Company Number: PHEH2006US07275

PATIENT
  Sex: Male
  Weight: 58.503 kg

DRUGS (10)
  1. ALPRAZOLAM [Concomitant]
  2. TOPROL-XL [Concomitant]
     Dosage: 50 MG, QD
     Route: 048
  3. ZOCOR [Concomitant]
     Dosage: 80 MG, QD
     Route: 048
  4. MEVACOR [Concomitant]
  5. ZOMETA [Suspect]
     Indication: METASTASES TO BONE
     Dosage: 4 MG, QW3
     Route: 042
     Dates: start: 20020301
  6. AMOXICILLIN [Suspect]
  7. ATENOLOL [Concomitant]
  8. LUPRON [Concomitant]
     Dosage: Q 3 MONTHS
  9. ASPIRIN [Concomitant]
     Dosage: 325 MG,
  10. PAXIL [Concomitant]
     Dosage: 20 MG, QD
     Route: 048

REACTIONS (36)
  - NAUSEA [None]
  - BONE DISORDER [None]
  - SENSITIVITY OF TEETH [None]
  - HYDRONEPHROSIS [None]
  - PAIN IN JAW [None]
  - URINARY TRACT INFECTION [None]
  - SPLENIC GRANULOMA [None]
  - MUSCULOSKELETAL PAIN [None]
  - PAIN [None]
  - GINGIVAL DISORDER [None]
  - HAEMATURIA [None]
  - HYPOAESTHESIA [None]
  - RASH [None]
  - NECK PAIN [None]
  - RENAL CYST [None]
  - EMPHYSEMA [None]
  - PRURITUS [None]
  - URTICARIA [None]
  - RENAL HAEMORRHAGE [None]
  - LUNG HYPERINFLATION [None]
  - ANHEDONIA [None]
  - GINGIVITIS [None]
  - OROPHARYNGEAL PLAQUE [None]
  - PAIN IN EXTREMITY [None]
  - OSTEOARTHRITIS [None]
  - HEPATIC CYST [None]
  - RENAL COLIC [None]
  - OSTEONECROSIS OF JAW [None]
  - ANXIETY [None]
  - CHRONIC SINUSITIS [None]
  - RADICULOPATHY [None]
  - ROTATOR CUFF SYNDROME [None]
  - INFLAMMATION [None]
  - FLANK PAIN [None]
  - DENTAL CARIES [None]
  - BEREAVEMENT [None]
